FAERS Safety Report 12421769 (Version 2)
Quarter: 2016Q2

REPORT INFORMATION
  Report Type: Spontaneous
  Country: US (occurrence: US)
  Receive Date: 20160531
  Receipt Date: 20160607
  Transmission Date: 20160815
  Serious: No
  Sender: FDA-Public Use
  Company Number: US-PFIZER INC-2016268852

PATIENT
  Age: 63 Year
  Sex: Male

DRUGS (1)
  1. BOSULIF [Suspect]
     Active Substance: BOSUTINIB MONOHYDRATE
     Indication: CHRONIC MYELOID LEUKAEMIA
     Dosage: 500 MG, 1X/DAY
     Dates: start: 20160516

REACTIONS (7)
  - Hot flush [Recovered/Resolved]
  - Fatigue [Recovering/Resolving]
  - Nausea [Recovered/Resolved]
  - Vomiting [Recovered/Resolved]
  - Hyperhidrosis [Recovered/Resolved]
  - Diarrhoea [Recovered/Resolved]
  - Faeces soft [Recovered/Resolved]
